FAERS Safety Report 5531528-9 (Version None)
Quarter: 2007Q4

REPORT INFORMATION
  Report Type: 
  Country: None (occurrence: None)
  Receive Date: 20071127
  Receipt Date: 20071127
  Transmission Date: 20080405
  Serious: No
  Sender: FDA-Public Use
  Company Number: None

PATIENT
  Age: 79 Year
  Sex: Male
  Weight: 161.9341 kg

DRUGS (2)
  1. TYGACIL [Suspect]
     Indication: CELLULITIS
     Dosage: 50 MG EVERY 12 HOURS IV
     Route: 042
     Dates: start: 20071109, end: 20071120
  2. ZOSYN [Suspect]
     Dosage: 2.25 GRAMS EVERY 8 HOURS IV
     Route: 042
     Dates: start: 20071109, end: 20071120

REACTIONS (2)
  - INFUSION RELATED REACTION [None]
  - RASH GENERALISED [None]
